FAERS Safety Report 10209742 (Version 2)
Quarter: 2014Q3

REPORT INFORMATION
  Report Type: Report from Study
  Country: KR (occurrence: KR)
  Receive Date: 20140602
  Receipt Date: 20140822
  Transmission Date: 20150326
  Serious: Yes (Hospitalization)
  Sender: FDA-Public Use
  Company Number: KR-ROCHE-1404976

PATIENT
  Age: 60 Year
  Sex: Male
  Weight: 53.7 kg

DRUGS (11)
  1. ZANTAC [Concomitant]
     Active Substance: RANITIDINE HYDROCHLORIDE
     Indication: GASTRITIS
     Dosage: SELECT IF ONGOING=NO
     Route: 048
     Dates: start: 20140429, end: 20140501
  2. FEROBA-YOU SR [Concomitant]
     Indication: IRON DEFICIENCY ANAEMIA
     Dosage: SELECT IF ONGOING=YES
     Route: 048
     Dates: start: 20130527
  3. TRASTUZUMAB [Suspect]
     Active Substance: TRASTUZUMAB
     Indication: HER-2 POSITIVE GASTRIC CANCER
     Dosage: LOADING DOSE
     Route: 042
     Dates: start: 20130702, end: 20130702
  4. PLACEBO [Suspect]
     Active Substance: UNSPECIFIED INGREDIENT
     Dosage: MAINTAINANCE DOSE?LAST DOSE PRIOR TO SERIOUS ADVERSE EVENT: 28/APR/2014
     Route: 042
  5. PLACEBO [Suspect]
     Active Substance: UNSPECIFIED INGREDIENT
     Indication: PRODUCT USED FOR UNKNOWN INDICATION
     Dosage: LOADING DOSE
     Route: 042
     Dates: start: 20130702, end: 20130702
  6. DEXAMETHASONE. [Concomitant]
     Active Substance: DEXAMETHASONE
     Indication: NAUSEA
     Dosage: SELECT IF ONGOING=NO
     Route: 048
     Dates: start: 20140429, end: 20140501
  7. DEXAMETHASONE. [Concomitant]
     Active Substance: DEXAMETHASONE
     Indication: VOMITING
  8. CISPLATIN. [Suspect]
     Active Substance: CISPLATIN
     Indication: HER-2 POSITIVE GASTRIC CANCER
     Dosage: Q3S
     Route: 042
     Dates: start: 20130702, end: 20131202
  9. NEURONTIN (SOUTH KOREA) [Concomitant]
     Indication: NEUROPATHY PERIPHERAL
     Dosage: SELECT IF ONGOING=YES
     Route: 048
     Dates: start: 20140414
  10. TRASTUZUMAB [Suspect]
     Active Substance: TRASTUZUMAB
     Dosage: MAINTAINANCE DOSE?LAST DOSE PRIOR TO SERIOUS ADVERSE EVENT: 28/APR/2014
     Route: 042
  11. CAPECITABINE [Suspect]
     Active Substance: CAPECITABINE
     Indication: HER-2 POSITIVE GASTRIC CANCER
     Dosage: LAST DOSE PRIOR TO SERIOUS ADVERSE EVENT: 12/MAY/2014
     Route: 048
     Dates: start: 20130702, end: 20140512

REACTIONS (1)
  - Device dislocation [Recovered/Resolved]

NARRATIVE: CASE EVENT DATE: 20140515
